FAERS Safety Report 10488183 (Version 1)
Quarter: 2014Q4

REPORT INFORMATION
  Report Type: Spontaneous
  Country: FR (occurrence: FR)
  Receive Date: 20141002
  Receipt Date: 20141002
  Transmission Date: 20150528
  Serious: Yes (Other)
  Sender: FDA-Public Use
  Company Number: FR-ACCORD-026226

PATIENT
  Age: 50 Year
  Sex: Male
  Weight: 68 kg

DRUGS (8)
  1. PRIMPERAN [Suspect]
     Active Substance: METOCLOPRAMIDE HYDROCHLORIDE
     Indication: VOMITING
     Route: 054
     Dates: start: 20140411
  2. ERBITUX [Suspect]
     Active Substance: CETUXIMAB
     Indication: LARYNGEAL CANCER
     Dosage: RECEIVED 452 MG ON 11-APR-2014 (DAY 8) AND 18-APR-2014 (DAY 15).
     Route: 042
     Dates: start: 20140403
  3. CISPLATIN MYLAN [Suspect]
     Active Substance: CISPLATIN
     Indication: LARYNGEAL CANCER
     Dosage: RECEIVED ON 11-APR-2014 (DAY 8).
     Route: 042
     Dates: start: 20140403
  4. ZOPHREN [Suspect]
     Active Substance: ONDANSETRON
     Indication: VOMITING
     Route: 054
     Dates: start: 20140411
  5. FLUOROURACIL ACCORD [Suspect]
     Active Substance: FLUOROURACIL
     Indication: LARYNGEAL CANCER
     Dosage: RECEIVED ON 11-APR-2014 (DAY 8).
     Route: 065
     Dates: start: 20140403
  6. EMEND [Suspect]
     Active Substance: APREPITANT
     Indication: VOMITING
     Route: 065
     Dates: start: 20140411
  7. LYSANXIA [Suspect]
     Active Substance: PRAZEPAM
     Indication: PRODUCT USED FOR UNKNOWN INDICATION
     Dosage: LYSANXIA 15 MG/ML
     Route: 048
     Dates: start: 20140411
  8. AMITRIPTYLINE [Suspect]
     Active Substance: AMITRIPTYLINE
     Indication: PRODUCT USED FOR UNKNOWN INDICATION
     Dosage: 15 VIALS DAILY
     Route: 048
     Dates: start: 20140411

REACTIONS (3)
  - Vomiting [Unknown]
  - Nausea [Not Recovered/Not Resolved]
  - Dermatitis acneiform [Not Recovered/Not Resolved]

NARRATIVE: CASE EVENT DATE: 201404
